FAERS Safety Report 15719564 (Version 2)
Quarter: 2019Q1

REPORT INFORMATION
  Report Type: Spontaneous
  Country: US (occurrence: US)
  Receive Date: 20181213
  Receipt Date: 20190103
  Transmission Date: 20190417
  Serious: No
  Sender: FDA-Public Use
  Company Number: US-009507513-1812USA004817

PATIENT
  Age: 17 Year
  Sex: Female
  Weight: 57.42 kg

DRUGS (1)
  1. NEXPLANON [Suspect]
     Active Substance: ETONOGESTREL
     Indication: CONTRACEPTION
     Dosage: 1 IMPLANT ROD, UNK
     Route: 059
     Dates: start: 20160217, end: 20180110

REACTIONS (3)
  - Implant site pain [Recovered/Resolved]
  - Complication of device removal [Recovered/Resolved]
  - Complication associated with device [Recovered/Resolved]

NARRATIVE: CASE EVENT DATE: 201707
